FAERS Safety Report 8607754-9 (Version None)
Quarter: 2012Q3

REPORT INFORMATION
  Report Type: 
  Country: None (occurrence: None)
  Receive Date: 20120821
  Receipt Date: 20120814
  Transmission Date: 20120928
  Serious: Yes (Other)
  Sender: FDA-Public Use
  Company Number: PHHY2012FR071366

PATIENT
  Sex: Female

DRUGS (9)
  1. BRICANYL [Concomitant]
  2. NORDETTE-21 [Concomitant]
  3. TEGRETOL [Suspect]
     Indication: NERVOUSNESS
     Dosage: 200 MG, BID
     Dates: start: 19920101
  4. NASONEX [Concomitant]
     Dosage: 2 DF, UNK
  5. SERETIDE ^ALLEN + HANBURYS LTD^ [Concomitant]
     Dosage: 2 DF, UNK
  6. TEGRETOL [Suspect]
     Dosage: 200 MG, QD
     Dates: start: 20090101
  7. VENTOLIN [Concomitant]
  8. SINGULAIR [Concomitant]
     Dosage: 10 MG/DAY
  9. TEGRETOL [Suspect]
     Dosage: 100 MG, QD
     Dates: start: 20100101

REACTIONS (3)
  - PNEUMONIA [None]
  - BRONCHITIS [None]
  - ASTHMA [None]
